FAERS Safety Report 6435641-3 (Version None)
Quarter: 2009Q4

REPORT INFORMATION
  Report Type: 
  Country: None (occurrence: None)
  Receive Date: 20091111
  Receipt Date: 20091105
  Transmission Date: 20100525
  Serious: Yes (Other)
  Sender: FDA-Public Use
  Company Number: IL-JNJFOC-20091102128

PATIENT
  Age: 7 Year
  Sex: Male

DRUGS (3)
  1. RISPERDAL [Suspect]
     Dosage: 0.75 MG IN MORNING AND 0.5 MG IN EVENING
     Route: 065
  2. RISPERDAL [Suspect]
     Dosage: 1 MG IN EVENING
     Route: 065
  3. RISPERDAL [Suspect]
     Indication: ABNORMAL BEHAVIOUR
     Dosage: 1 MG IN MORNING
     Route: 065

REACTIONS (2)
  - AGGRESSION [None]
  - HALLUCINATION [None]
